FAERS Safety Report 19937034 (Version 1)
Quarter: 2021Q4

REPORT INFORMATION
  Report Type: Spontaneous
  Country: JP (occurrence: JP)
  Receive Date: 20211009
  Receipt Date: 20211009
  Transmission Date: 20220303
  Serious: Yes (Hospitalization, Other)
  Sender: FDA-Public Use
  Company Number: JP-CHUGAI-2021021024

PATIENT
  Sex: Female

DRUGS (1)
  1. KADCYLA [Suspect]
     Active Substance: ADO-TRASTUZUMAB EMTANSINE
     Indication: Breast cancer
     Dosage: UNK
     Route: 041
     Dates: start: 2020, end: 2021

REACTIONS (3)
  - Hepatic cirrhosis [Unknown]
  - Nodular regenerative hyperplasia [Unknown]
  - Drug-induced liver injury [Unknown]
